FAERS Safety Report 5832630-4 (Version None)
Quarter: 2008Q3

REPORT INFORMATION
  Report Type: 
  Country: None (occurrence: None)
  Receive Date: 20080804
  Receipt Date: 20080725
  Transmission Date: 20090109
  Serious: Yes (Other)
  Sender: FDA-Public Use
  Company Number: PHEH2008US06033

PATIENT
  Sex: Female

DRUGS (1)
  1. EXFORGE [Suspect]
     Dosage: UNK, QD

REACTIONS (4)
  - HEPATIC ENZYME INCREASED [None]
  - HEPATIC FAILURE [None]
  - PANCREATIC CARCINOMA [None]
  - PANCREATIC MASS [None]
